FAERS Safety Report 7605119-X (Version None)
Quarter: 2011Q3

REPORT INFORMATION
  Report Type: 
  Country: None (occurrence: None)
  Receive Date: 20110713
  Receipt Date: 20110105
  Transmission Date: 20111222
  Serious: Yes (Death, Hospitalization, Other)
  Sender: FDA-Public Use
  Company Number: US-BAYER-200940021NA

PATIENT
  Age: 80 Year
  Sex: Male
  Weight: 111.11 kg

DRUGS (21)
  1. PLATELETS [Concomitant]
     Dosage: 20 UNITS
     Route: 042
     Dates: start: 20040322, end: 20040322
  2. TERAZOSIN HCL [Concomitant]
     Dosage: 2 MG, QD
     Route: 048
  3. NITROSTAT [Concomitant]
     Dosage: 5MCG/HOUR
     Route: 042
     Dates: start: 20040322, end: 20040322
  4. IBUPROFEN [Concomitant]
  5. VERSED [Concomitant]
     Dosage: 5 MG/HR, UNK
     Route: 042
     Dates: start: 20040322, end: 20040322
  6. ACETAMINOPHEN [Concomitant]
  7. COUMADIN [Concomitant]
     Indication: ATRIAL FLUTTER
     Dosage: 4 MG, QD
  8. LASIX [Concomitant]
     Dosage: 40 MG, QD
     Route: 048
  9. EPINEPHRINE [Concomitant]
     Dosage: 10MCG/HR
     Route: 042
     Dates: start: 20040322
  10. TRASYLOL [Suspect]
     Indication: AORTIC VALVE REPLACEMENT
  11. LEVOPHED [Concomitant]
     Dosage: 30MCG/HR
     Route: 042
     Dates: start: 20040322, end: 20040326
  12. TRASYLOL [Suspect]
     Indication: CORONARY ARTERY BYPASS
     Dosage: 200 ML THEN 50 CC PER HOUR INTRAVENOUSLY
     Route: 042
     Dates: start: 20040322, end: 20040322
  13. VANCOMYCIN [Concomitant]
     Dosage: 1 GM
     Route: 042
     Dates: start: 20040322, end: 20040322
  14. FRESH FROZEN PLASMA [Concomitant]
     Dosage: 4 UNITS
     Route: 042
     Dates: start: 20040322, end: 20040322
  15. REFLUDAN [Concomitant]
     Dosage: 0.5MG/HOUR
     Route: 042
     Dates: start: 20040322, end: 20040322
  16. CRYOPRECIPITATES [Concomitant]
     Dosage: BYPASS
     Dates: start: 20040322, end: 20040322
  17. CALAN SLOW RELEASE [Concomitant]
     Dosage: 120 MG, BID
     Route: 048
  18. SIMVASTATIN [Concomitant]
     Dosage: 10 MG, QD
  19. NITROSTAT [Concomitant]
     Route: 060
  20. ALBUMIN (HUMAN) [Concomitant]
     Dosage: 500 CC
  21. BUMEX [Concomitant]
     Indication: BLOOD PRESSURE DECREASED
     Dosage: 1 MG, UNK
     Route: 042
     Dates: start: 20040322, end: 20040324

REACTIONS (8)
  - UNEVALUABLE EVENT [None]
  - RENAL FAILURE ACUTE [None]
  - INJURY [None]
  - DEATH [None]
  - PAIN [None]
  - RENAL IMPAIRMENT [None]
  - RENAL FAILURE [None]
  - RENAL INJURY [None]
